FAERS Safety Report 7091012-0 (Version None)
Quarter: 2010Q4

REPORT INFORMATION
  Report Type: 
  Country: None (occurrence: None)
  Receive Date: 20101109
  Receipt Date: 20101027
  Transmission Date: 20110411
  Serious: Yes (Death, Other)
  Sender: FDA-Public Use
  Company Number: JP-ELI_LILLY_AND_COMPANY-JP201010006909

PATIENT
  Age: 75 Year
  Sex: Male

DRUGS (2)
  1. GEMZAR [Suspect]
     Indication: BLADDER CANCER RECURRENT
     Dosage: 1500 MG, UNK
     Route: 042
     Dates: start: 20081201
  2. GEMZAR [Suspect]
     Dosage: 1200 MG, UNK
     Route: 042

REACTIONS (3)
  - CHOLANGITIS [None]
  - MALIGNANT NEOPLASM PROGRESSION [None]
  - PLATELET COUNT DECREASED [None]
